FAERS Safety Report 9682888 (Version 2)
Quarter: 2013Q4

REPORT INFORMATION
  Report Type: Spontaneous
  Country: ES (occurrence: ES)
  Receive Date: 20131112
  Receipt Date: 20131125
  Transmission Date: 20140711
  Serious: No
  Sender: FDA-Public Use
  Company Number: ES-ELI_LILLY_AND_COMPANY-ES201311000657

PATIENT
  Age: 64 Year
  Sex: Female

DRUGS (2)
  1. XERISTAR [Suspect]
     Indication: DEPRESSION
     Dosage: 60 MG, QD
     Route: 048
  2. XERISTAR [Suspect]
     Dosage: 30 MG, QD
     Route: 048

REACTIONS (3)
  - Hepatic enzyme abnormal [Recovered/Resolved]
  - Hypothyroidism [Recovered/Resolved]
  - Transferrin abnormal [Unknown]
